FAERS Safety Report 20989510 (Version 4)
Quarter: 2022Q2

REPORT INFORMATION
  Report Type: Spontaneous
  Country: US (occurrence: US)
  Receive Date: 20220621
  Receipt Date: 20220623
  Transmission Date: 20220721
  Serious: Yes (Hospitalization, Other)
  Sender: FDA-Public Use
  Company Number: US-BoehringerIngelheim-2022-BI-177607

PATIENT
  Age: 48 Year
  Sex: Female

DRUGS (1)
  1. JARDIANCE [Suspect]
     Active Substance: EMPAGLIFLOZIN
     Indication: Type 1 diabetes mellitus

REACTIONS (4)
  - COVID-19 [Recovered/Resolved]
  - Diabetic ketoacidosis [Recovered/Resolved]
  - Euglycaemic diabetic ketoacidosis [Unknown]
  - Off label use [Unknown]

NARRATIVE: CASE EVENT DATE: 20220616
